FAERS Safety Report 9311035 (Version 3)
Quarter: 2013Q3

REPORT INFORMATION
  Report Type: Spontaneous
  Country: CA (occurrence: CA)
  Receive Date: 20130528
  Receipt Date: 20130704
  Transmission Date: 20140515
  Serious: Yes (Other)
  Sender: FDA-Public Use
  Company Number: CA-AMGEN-CANSP2013036883

PATIENT
  Age: 62 Year
  Sex: Male

DRUGS (2)
  1. XGEVA [Suspect]
     Indication: PRODUCT USED FOR UNKNOWN INDICATION
     Dosage: UNK
     Dates: start: 20121010, end: 201304
  2. VASOTEC                            /00574902/ [Concomitant]

REACTIONS (3)
  - Haemorrhage intracranial [Recovering/Resolving]
  - Metastases to central nervous system [Not Recovered/Not Resolved]
  - Platelet count decreased [Not Recovered/Not Resolved]
